FAERS Safety Report 12046195 (Version 2)
Quarter: 2016Q1

REPORT INFORMATION
  Report Type: Spontaneous
  Country: JP (occurrence: JP)
  Receive Date: 20160209
  Receipt Date: 20160308
  Transmission Date: 20160526
  Serious: No
  Sender: FDA-Public Use
  Company Number: JP-ROCHE-1708028

PATIENT
  Age: 47 Year
  Sex: Female
  Weight: 36 kg

DRUGS (10)
  1. SILECE [Concomitant]
     Active Substance: FLUNITRAZEPAM
     Route: 048
  2. TENORMIN [Concomitant]
     Active Substance: ATENOLOL
     Route: 048
  3. ABILIFY [Suspect]
     Active Substance: ARIPIPRAZOLE
     Indication: PRODUCT USED FOR UNKNOWN INDICATION
     Dosage: DOSAGE IS UNCERTAIN
     Route: 048
  4. BLONANSERIN [Concomitant]
     Active Substance: BLONANSERIN
     Route: 048
     Dates: start: 20160106
  5. GASTER [Concomitant]
     Active Substance: FAMOTIDINE
     Route: 048
  6. PURSENNID [Concomitant]
     Active Substance: SENNOSIDES A AND B
     Route: 048
  7. ZOLPIDEM TARTRATE. [Concomitant]
     Active Substance: ZOLPIDEM TARTRATE
     Route: 048
  8. RIVOTRIL [Suspect]
     Active Substance: CLONAZEPAM
     Indication: EPILEPSY
     Route: 048
  9. KEPPRA [Suspect]
     Active Substance: LEVETIRACETAM
     Indication: EPILEPSY
     Dosage: DRUG REPORTED AS E KEPPRA
     Route: 048
     Dates: end: 20160203
  10. TRAZODONE [Concomitant]
     Active Substance: TRAZODONE HYDROCHLORIDE
     Dosage: 25MG-50MG
     Route: 048

REACTIONS (1)
  - Hepatic function abnormal [Unknown]

NARRATIVE: CASE EVENT DATE: 20151030
